FAERS Safety Report 19027990 (Version 2)
Quarter: 2021Q2

REPORT INFORMATION
  Report Type: Spontaneous
  Country: IT (occurrence: IT)
  Receive Date: 20210319
  Receipt Date: 20210423
  Transmission Date: 20210717
  Serious: Yes (Hospitalization, Other)
  Sender: FDA-Public Use
  Company Number: IT-AUROBINDO-AUR-APL-2021-010857

PATIENT
  Age: 39 Year
  Sex: Female
  Weight: 97 kg

DRUGS (12)
  1. HYDROCORTISONE. [Suspect]
     Active Substance: HYDROCORTISONE
     Indication: PRODUCT USED FOR UNKNOWN INDICATION
     Dosage: 100 MILLIGRAM
     Route: 040
  2. HYDROCORTISONE. [Suspect]
     Active Substance: HYDROCORTISONE
     Dosage: 200 MILLIGRAM, ONCE A DAY
     Route: 042
  3. AZITHROMYCIN ANHYDROUS. [Suspect]
     Active Substance: AZITHROMYCIN ANHYDROUS
     Indication: COVID-19
     Dosage: UNK
     Route: 065
  4. CORTISONE ACETATE. [Suspect]
     Active Substance: CORTISONE ACETATE
     Dosage: 31.25 MILLIGRAM, ONCE A DAY (12.5+12.5 + 6.25 MG)
     Route: 048
  5. DEXAMETHASONE. [Suspect]
     Active Substance: DEXAMETHASONE
     Indication: ADRENOGENITAL SYNDROME
     Dosage: 0.75 MILLIGRAM, ONCE A DAY
     Route: 065
  6. HYDROXYCHLOROQUINE [Suspect]
     Active Substance: HYDROXYCHLOROQUINE
     Indication: COVID-19
     Dosage: UNK UNK, UNKNOWN
     Route: 065
  7. HEPARIN [Concomitant]
     Active Substance: HEPARIN SODIUM
     Indication: PRODUCT USED FOR UNKNOWN INDICATION
     Dosage: UNK UNK, UNKNOWN
     Route: 065
  8. CORTISONE ACETATE. [Suspect]
     Active Substance: CORTISONE ACETATE
     Indication: ADRENOGENITAL SYNDROME
     Dosage: 75 MILLIGRAM, ONCE A DAY
     Route: 048
  9. HYDROCORTISONE. [Suspect]
     Active Substance: HYDROCORTISONE
     Dosage: 50 MILLIGRAM, FOUR TIMES/DAY
     Route: 042
  10. PARACETAMOL [Suspect]
     Active Substance: ACETAMINOPHEN
     Indication: HYPERPYREXIA
     Dosage: UNK
     Route: 065
  11. CORTISONE ACETATE. [Suspect]
     Active Substance: CORTISONE ACETATE
     Dosage: 12.5 MILLIGRAM, ONCE A DAY
     Route: 065
  12. CORTISONE ACETATE. [Suspect]
     Active Substance: CORTISONE ACETATE
     Indication: HORMONE REPLACEMENT THERAPY
     Dosage: 50 MILLIGRAM, ONCE A DAY
     Route: 048

REACTIONS (6)
  - Drug interaction [Unknown]
  - Off label use [Unknown]
  - COVID-19 [Recovered/Resolved]
  - Exposure during pregnancy [Unknown]
  - Pulmonary embolism [Recovered/Resolved]
  - Product use in unapproved indication [Unknown]
